FAERS Safety Report 8486953 (Version 3)
Quarter: 2012Q4

REPORT INFORMATION
  Report Type: 
  Country: CA (occurrence: CA)
  Receive Date: 20120402
  Receipt Date: 20121207
  Transmission Date: 20130627
  Serious: Yes (Death)
  Sender: FDA-Public Use
  Company Number: CA-JNJFOC-20120314375

PATIENT

DRUGS (4)
  1. DIPHENHYDRAMINE [Suspect]
     Indication: SUICIDE ATTEMPT
     Route: 065
  2. ACETAMINOPHEN [Suspect]
     Route: 065
  3. ACETAMINOPHEN [Suspect]
     Indication: SUICIDE ATTEMPT
     Route: 065
  4. SALICYLATES NOS [Suspect]
     Indication: SUICIDE ATTEMPT
     Route: 065

REACTIONS (2)
  - Completed suicide [Fatal]
  - Intentional overdose [Fatal]
